FAERS Safety Report 21000820 (Version 3)
Quarter: 2023Q1

REPORT INFORMATION
  Report Type: Report from Study
  Country: US (occurrence: US)
  Receive Date: 20220623
  Receipt Date: 20230105
  Transmission Date: 20230418
  Serious: Yes (Death)
  Sender: FDA-Public Use
  Company Number: US-ACADIA PHARMACEUTICALS INC.-ACA-2022-PIM-001911

PATIENT
  Sex: Male

DRUGS (4)
  1. NUPLAZID [Suspect]
     Active Substance: PIMAVANSERIN TARTRATE
     Indication: Parkinson^s disease
     Dosage: 34 MILLIGRAM, QD
     Route: 048
     Dates: start: 202012
  2. DUOPA [Suspect]
     Active Substance: CARBIDOPA\LEVODOPA
     Dosage: 2 CASSETTES VIA PEG-J FOR UPTO 16 HRS QD; MORNING:7.5-8ML; 4.4ML DURING DAY(5:30AM-9:30PM); 2.8ML AT
  3. DUOPA [Suspect]
     Active Substance: CARBIDOPA\LEVODOPA
     Dosage: 2 CASSETTES VIA PEG-J FOR UP TO 16 HOURS EACH DAY. MORNING DOSE: 4.5ML, CONTINUOUS DOSE: 4.3ML DURIN
  4. SEROQUEL [Concomitant]
     Active Substance: QUETIAPINE FUMARATE

REACTIONS (4)
  - Parkinson^s disease [Fatal]
  - General physical health deterioration [Unknown]
  - Psychotic disorder [Unknown]
  - Hallucination [Unknown]
